FAERS Safety Report 4653209-6 (Version None)
Quarter: 2005Q2

REPORT INFORMATION
  Report Type: 
  Country: None (occurrence: None)
  Receive Date: 20050505
  Receipt Date: 20050427
  Transmission Date: 20051028
  Serious: Yes (Hospitalization)
  Sender: FDA-Public Use
  Company Number: PHEH2005US04831

PATIENT
  Age: 2 Year
  Sex: Female

DRUGS (1)
  1. ZELNORM [Suspect]
     Indication: CONGENITAL MEGACOLON
     Dosage: 6 MG, QD
     Dates: start: 20040301

REACTIONS (5)
  - DEHYDRATION [None]
  - DIARRHOEA [None]
  - MEDICATION ERROR [None]
  - NAUSEA [None]
  - VOMITING [None]
